FAERS Safety Report 15098198 (Version 2)
Quarter: 2018Q3

REPORT INFORMATION
  Report Type: Spontaneous
  Country: FR (occurrence: FR)
  Receive Date: 20180702
  Receipt Date: 20180711
  Transmission Date: 20181010
  Serious: Yes (Other)
  Sender: FDA-Public Use
  Company Number: FR-OTSUKA-2018_010335

PATIENT
  Age: 57 Year
  Sex: Male
  Weight: 81 kg

DRUGS (2)
  1. JINARC [Suspect]
     Active Substance: TOLVAPTAN
     Dosage: 30 MG, QD (IN EVENING)
     Route: 048
     Dates: start: 20170628, end: 20171001
  2. JINARC [Suspect]
     Active Substance: TOLVAPTAN
     Indication: CONGENITAL CYSTIC KIDNEY DISEASE
     Dosage: 90 MG, QD (IN MORNING)
     Route: 048
     Dates: start: 20170628, end: 20171001

REACTIONS (9)
  - Blood lactate dehydrogenase increased [Unknown]
  - Blood creatinine increased [Unknown]
  - Alanine aminotransferase increased [Recovered/Resolved]
  - Glomerular filtration rate decreased [Unknown]
  - Gamma-glutamyltransferase increased [Unknown]
  - Aspartate aminotransferase increased [Recovered/Resolved]
  - Lipase increased [Unknown]
  - Blood urea increased [Unknown]
  - Blood uric acid increased [Unknown]

NARRATIVE: CASE EVENT DATE: 20170922
